FAERS Safety Report 5099139-X (Version None)
Quarter: 2006Q3

REPORT INFORMATION
  Report Type: 
  Country: None (occurrence: None)
  Receive Date: 20060731
  Receipt Date: 20050817
  Transmission Date: 20061208
  Serious: Yes (Other)
  Sender: FDA-Public Use
  Company Number: 216464

PATIENT
  Age: 60 Year
  Sex: Female
  Weight: 54.5 kg

DRUGS (1)
  1. RITUXAN [Suspect]
     Indication: NON-HODGKIN'S LYMPHOMA
     Dosage: 585, 4/WEEK, INTRAVENOUS
     Route: 042
     Dates: start: 20050722

REACTIONS (1)
  - ANGIONEUROTIC OEDEMA [None]
